FAERS Safety Report 24086777 (Version 3)
Quarter: 2025Q3

REPORT INFORMATION
  Report Type: Spontaneous
  Country: US (occurrence: US)
  Receive Date: 20240713
  Receipt Date: 20250813
  Transmission Date: 20251021
  Serious: No
  Sender: SANOFI AVENTIS
  Company Number: US-SA-SAC20240711000253

PATIENT
  Age: 51 Year
  Sex: Female

DRUGS (12)
  1. DUPIXENT [Suspect]
     Active Substance: DUPILUMAB
     Indication: Dermatitis atopic
     Dosage: 300 MG, QW
     Route: 058
     Dates: start: 20250711
  2. DUPIXENT [Suspect]
     Active Substance: DUPILUMAB
     Dosage: 300 MG, QOW
     Route: 058
  3. IRON [Concomitant]
     Active Substance: IRON
  4. IBUPROFEN [Concomitant]
     Active Substance: IBUPROFEN
  5. MELATONIN [Concomitant]
     Active Substance: MELATONIN
  6. METFORMIN [Concomitant]
     Active Substance: METFORMIN HYDROCHLORIDE
  7. ESCITALOPRAM [Concomitant]
     Active Substance: ESCITALOPRAM OXALATE
  8. CRESTOR [Concomitant]
     Active Substance: ROSUVASTATIN CALCIUM
  9. HUMALOG [Concomitant]
     Active Substance: INSULIN LISPRO
  10. FARXIGA [Concomitant]
     Active Substance: DAPAGLIFLOZIN PROPANEDIOL
  11. FLUTICASONE [Concomitant]
     Active Substance: FLUTICASONE
  12. ELETRIPTAN [Concomitant]
     Active Substance: ELETRIPTAN

REACTIONS (2)
  - Sleep disorder due to a general medical condition [Unknown]
  - Off label use [Unknown]

NARRATIVE: CASE EVENT DATE: 20250701
